FAERS Safety Report 9538983 (Version 1)
Quarter: 2013Q2

REPORT INFORMATION
  Report Type: Spontaneous
  Country: US (occurrence: None)
  Receive Date: 20130517
  Receipt Date: 20130517
  Transmission Date: 20140414
  Serious: No
  Sender: FDA-Public Use
  Company Number: 1000042681

PATIENT
  Age: 54 Year
  Sex: Female

DRUGS (6)
  1. VIIBRYD (VILAZODONE HYDROCHLORIDE) (10 MILLIGRAM, TABLETS) [Suspect]
     Indication: DEPRESSION
     Route: 048
     Dates: start: 201301, end: 2013
  2. ZONISAMIDE (ZONISAMIDE) UNKNOWN [Concomitant]
  3. ASPIRIN (ACETYLSALICYLIC ACID) [Concomitant]
  4. NAPRELAN (NAPROXEN SODIUM) [Concomitant]
  5. HYDROCHLOROTHIAZIDE (HYDROCHLOROTHIAZIDE) [Concomitant]
  6. NEXIUM [Concomitant]

REACTIONS (4)
  - Nail discolouration [None]
  - Onychomadesis [None]
  - Contusion [None]
  - Nausea [None]
